FAERS Safety Report 7010891-6 (Version None)
Quarter: 2010Q3

REPORT INFORMATION
  Report Type: 
  Country: None (occurrence: None)
  Receive Date: 20100923
  Receipt Date: 20100923
  Transmission Date: 20110219
  Serious: Yes (Other)
  Sender: FDA-Public Use
  Company Number: None

PATIENT
  Age: 39 Year
  Sex: Male
  Weight: 72.7 kg

DRUGS (2)
  1. BUSPAR [Suspect]
     Indication: ANXIETY
     Dosage: 15MG 1/DAY ORAL MAY 98 (10MG) JUNE 98(15MG)
     Route: 048
     Dates: start: 19980501
  2. BUSPAR [Suspect]
     Indication: ANXIETY
     Dosage: 15MG 1/DAY ORAL MAY 98 (10MG) JUNE 98(15MG)
     Route: 048
     Dates: start: 19980601

REACTIONS (1)
  - HYPOMANIA [None]
